FAERS Safety Report 23090707 (Version 1)
Quarter: 2023Q4

REPORT INFORMATION
  Report Type: Spontaneous
  Country: US (occurrence: US)
  Receive Date: 20231020
  Receipt Date: 20231020
  Transmission Date: 20240109
  Serious: No
  Sender: FDA-Public Use
  Company Number: US-PFIZER INC-PV202300171594

PATIENT
  Age: 47 Year
  Sex: Male

DRUGS (1)
  1. HYDROCORTISONE [Suspect]
     Active Substance: HYDROCORTISONE
     Dosage: UNK

REACTIONS (9)
  - Rash erythematous [Unknown]
  - Dry skin [Unknown]
  - Loss of personal independence in daily activities [Unknown]
  - Skin burning sensation [Unknown]
  - Psoriasis [Unknown]
  - Skin exfoliation [Unknown]
  - Rash papulosquamous [Unknown]
  - Rash papular [Unknown]
  - Drug ineffective [Unknown]
